FAERS Safety Report 12420377 (Version 1)
Quarter: 2016Q2

REPORT INFORMATION
  Report Type: Spontaneous
  Country: FR (occurrence: FR)
  Receive Date: 20160531
  Receipt Date: 20160531
  Transmission Date: 20160815
  Serious: Yes (Hospitalization)
  Sender: FDA-Public Use
  Company Number: FR-009507513-1605FRA013739

PATIENT
  Age: 32 Year
  Sex: Female
  Weight: 52 kg

DRUGS (9)
  1. ANAFRANIL [Suspect]
     Active Substance: CLOMIPRAMINE HYDROCHLORIDE
     Indication: SUICIDE ATTEMPT
     Dosage: 500 MG, 500 MG SINGLE DOSE
     Route: 048
     Dates: start: 20160420, end: 20160420
  2. VENLAFAXINE HYDROCHLORIDE. [Suspect]
     Active Substance: VENLAFAXINE HYDROCHLORIDE
     Indication: SUICIDE ATTEMPT
     Dosage: 88 TABLETS, 6600 MG SINGLE DOSE
     Route: 048
     Dates: start: 20160420, end: 20160420
  3. SERESTA [Suspect]
     Active Substance: OXAZEPAM
     Indication: SUICIDE ATTEMPT
     Dosage: 1000 MG, 1000MG SINGLE DOSE
     Route: 048
     Dates: start: 20160420, end: 20160420
  4. TERALITHE [Suspect]
     Active Substance: LITHIUM CARBONATE
     Indication: SUICIDE ATTEMPT
     Dosage: 26 G, 26G SINGLE DOSE
     Route: 048
     Dates: start: 20160420, end: 20160420
  5. TERCIAN [Suspect]
     Active Substance: CYAMEMAZINE
     Indication: SUICIDE ATTEMPT
     Dosage: 500 MG, 500 MG SINGLE DOSE
     Route: 048
     Dates: start: 20160420, end: 20160420
  6. LAMICTAL [Suspect]
     Active Substance: LAMOTRIGINE
     Indication: SUICIDE ATTEMPT
     Dosage: 500 MG,500 MG SINGLE DOSE
     Route: 048
     Dates: start: 20160420, end: 20160420
  7. DIAZEPAM. [Suspect]
     Active Substance: DIAZEPAM
     Indication: SUICIDE ATTEMPT
     Dosage: 600 MG, ONCE
     Route: 048
     Dates: start: 20160420, end: 20160420
  8. NORSET [Suspect]
     Active Substance: MIRTAZAPINE
     Indication: SUICIDE ATTEMPT
     Dosage: 300 MG, 300 MG SINGLE DOSE
     Route: 048
     Dates: start: 20160420, end: 20160420
  9. MIANSERIN HYDROCHLORIDE [Suspect]
     Active Substance: MIANSERIN HYDROCHLORIDE
     Indication: SUICIDE ATTEMPT
     Dosage: 2640 MG, 2640 MG SINGLE DOSE
     Route: 048
     Dates: start: 20160420, end: 20160420

REACTIONS (4)
  - Coma [Recovered/Resolved]
  - Factor V deficiency [Recovered/Resolved]
  - Hepatic function abnormal [Recovered/Resolved]
  - Bundle branch block right [Unknown]

NARRATIVE: CASE EVENT DATE: 20160420
